FAERS Safety Report 17431855 (Version 1)
Quarter: 2020Q1

REPORT INFORMATION
  Report Type: Spontaneous
  Country: US (occurrence: US)
  Receive Date: 20200218
  Receipt Date: 20200218
  Transmission Date: 20200409
  Serious: Yes (Hospitalization)
  Sender: FDA-Public Use
  Company Number: US-BAYER-2020-027229

PATIENT
  Age: 49 Year
  Sex: Female

DRUGS (3)
  1. HEPARIN [Suspect]
     Active Substance: HEPARIN SODIUM
     Indication: ACUTE CORONARY SYNDROME
  2. CLOPIDOGREL [Suspect]
     Active Substance: CLOPIDOGREL BISULFATE
     Indication: ACUTE CORONARY SYNDROME
  3. ACETYLSALICYLIC ACID [Suspect]
     Active Substance: ASPIRIN
     Indication: ACUTE CORONARY SYNDROME

REACTIONS (5)
  - Labelled drug-drug interaction medication error [None]
  - Product administration error [None]
  - Coronary artery dissection [None]
  - Unintentional use for unapproved indication [None]
  - Arterial intramural haematoma [None]
